FAERS Safety Report 24213330 (Version 1)
Quarter: 2024Q3

REPORT INFORMATION
  Report Type: Spontaneous
  Country: ES (occurrence: ES)
  Receive Date: 20240815
  Receipt Date: 20240815
  Transmission Date: 20241017
  Serious: Yes (Life-Threatening, Hospitalization, Other)
  Sender: B BRAUN
  Company Number: ES-B.Braun Medical Inc.-2160499

PATIENT
  Age: 53 Year
  Sex: Male

DRUGS (6)
  1. ACETAMINOPHEN [Suspect]
     Active Substance: ACETAMINOPHEN
     Dates: start: 20240418
  2. CLOTHIAPINE [Suspect]
     Active Substance: CLOTHIAPINE
  3. CLOZAPINE [Suspect]
     Active Substance: CLOZAPINE
  4. LORAZEPAM [Suspect]
     Active Substance: LORAZEPAM
  5. AMOXICILLIN\CLAVULANATE POTASSIUM [Suspect]
     Active Substance: AMOXICILLIN\CLAVULANATE POTASSIUM
  6. UNSPECIFIED INGREDIENT [Suspect]
     Active Substance: UNSPECIFIED INGREDIENT

REACTIONS (1)
  - Depressed level of consciousness [Recovering/Resolving]
